FAERS Safety Report 25817607 (Version 1)
Quarter: 2025Q3

REPORT INFORMATION
  Report Type: Spontaneous
  Country: EU (occurrence: EU)
  Receive Date: 20250918
  Receipt Date: 20250918
  Transmission Date: 20251021
  Serious: Yes (Hospitalization, Other)
  Sender: HIKMA
  Company Number: None

PATIENT
  Age: 81 Year
  Sex: Female
  Weight: 52 kg

DRUGS (1)
  1. METHYLPREDNISOLONE [Suspect]
     Active Substance: METHYLPREDNISOLONE
     Indication: Chemotherapy side effect prophylaxis
     Route: 042
     Dates: start: 20250611, end: 20250611

REACTIONS (3)
  - Altered state of consciousness [Recovered/Resolved]
  - Type I hypersensitivity [Recovered/Resolved]
  - Allergy test positive [Recovered/Resolved]

NARRATIVE: CASE EVENT DATE: 20250611
